FAERS Safety Report 6503297-7 (Version None)
Quarter: 2009Q4

REPORT INFORMATION
  Report Type: 
  Country: None (occurrence: None)
  Receive Date: 20091201
  Receipt Date: 20090724
  Transmission Date: 20100525
  Serious: Yes (Hospitalization)
  Sender: FDA-Public Use
  Company Number: 2009SP016968

PATIENT
  Age: 35 Year
  Sex: Female
  Weight: 117.9352 kg

DRUGS (3)
  1. NUVARING [Suspect]
     Indication: MENSTRUATION IRREGULAR
     Dosage: 1 DF;QM;VAG
     Route: 067
     Dates: start: 20061001, end: 20070501
  2. BENICAR [Concomitant]
  3. AZMACORT [Concomitant]

REACTIONS (6)
  - DEPRESSION [None]
  - DILATATION VENTRICULAR [None]
  - DYSPEPSIA [None]
  - DYSPHONIA [None]
  - INFECTION [None]
  - PULMONARY EMBOLISM [None]
